FAERS Safety Report 5467276-3 (Version None)
Quarter: 2007Q3

REPORT INFORMATION
  Report Type: 
  Country: None (occurrence: None)
  Receive Date: 20070925
  Receipt Date: 20070920
  Transmission Date: 20080115
  Serious: Yes (Death)
  Sender: FDA-Public Use
  Company Number: PT-SANOFI-SYNTHELABO-D01200706272

PATIENT
  Sex: Female
  Weight: 59 kg

DRUGS (4)
  1. LEUCOVORIN [Suspect]
     Route: 042
     Dates: start: 20070910, end: 20070910
  2. FLUOROURACIL [Suspect]
     Dosage: 400 MG/M?, IV BOLUS D1+D2 FOLLOWED BY 5-FU 2400 MG/M? OVER 46-HOUR CONTINUOUS INFUSION.
     Route: 042
     Dates: start: 20070910, end: 20070912
  3. OXALIPLATIN [Suspect]
     Route: 042
     Dates: start: 20070910, end: 20070910
  4. SR57746 [Suspect]
     Indication: NEUROLOGICAL SYMPTOM
     Route: 048
     Dates: start: 20070910

REACTIONS (1)
  - SUDDEN DEATH [None]
